FAERS Safety Report 9093693 (Version 1)
Quarter: 2013Q1

REPORT INFORMATION
  Report Type: Spontaneous
  Country: US (occurrence: None)
  Receive Date: 20130122
  Receipt Date: 20130122
  Transmission Date: 20140127
  Serious: Yes (Death)
  Sender: FDA-Public Use
  Company Number: 1553072

PATIENT
  Age: 56 Year
  Sex: Male

DRUGS (4)
  1. DIAZEPAM [Suspect]
     Dosage: NOT REPORTED
  2. COCAINE [Concomitant]
     Dosage: NOT REPORTED
  3. ACETAMINOPHEN W/HYDROCODONE [Suspect]
     Dosage: NOT REPORTED
  4. HYDROXYZINE [Suspect]
     Dosage: NOT REPORTED

REACTIONS (3)
  - Completed suicide [None]
  - Poisoning [None]
  - Potentiating drug interaction [None]
